FAERS Safety Report 12007665 (Version 2)
Quarter: 2016Q1

REPORT INFORMATION
  Report Type: Spontaneous
  Country: US (occurrence: US)
  Receive Date: 20160204
  Receipt Date: 20160314
  Transmission Date: 20160526
  Serious: Yes (Hospitalization, Other)
  Sender: FDA-Public Use
  Company Number: US-SMITH AND NEPHEW, INC-2016SMT00093

PATIENT
  Age: 62 Year
  Sex: Female
  Weight: 116.55 kg

DRUGS (22)
  1. VITAMIN D3 [Concomitant]
     Active Substance: CHOLECALCIFEROL
  2. METFORMIN [Concomitant]
     Active Substance: METFORMIN HYDROCHLORIDE
     Dosage: 1000 UNK, 2X/DAY
  3. PEPCID [Concomitant]
     Active Substance: FAMOTIDINE
     Dosage: 20 MG, 1X/DAY
  4. VITAMIN E [Concomitant]
     Active Substance: .ALPHA.-TOCOPHEROL
  5. ALDACTONE [Concomitant]
     Active Substance: SPIRONOLACTONE
     Dosage: 25 MG, 1X/DAY
  6. COREG [Concomitant]
     Active Substance: CARVEDILOL
     Dosage: 12.5 MG, 2X/DAY
  7. MACROBID [Concomitant]
     Active Substance: NITROFURANTOIN\NITROFURANTOIN MONOHYDRATE
  8. LASIX [Concomitant]
     Active Substance: FUROSEMIDE
     Dosage: 20 MG, UNK
  9. ZOLOFT [Concomitant]
     Active Substance: SERTRALINE HYDROCHLORIDE
     Dosage: 100 MG, 1X/DAY
  10. LIPITOR [Concomitant]
     Active Substance: ATORVASTATIN CALCIUM
     Dosage: 80 MG, UNK
  11. FISH OIL [Concomitant]
     Active Substance: FISH OIL
  12. OXYCODONE [Concomitant]
     Active Substance: OXYCODONE
     Dosage: 15 MG, EVERY 6 HOURS
  13. COUMADIN [Concomitant]
     Active Substance: WARFARIN SODIUM
     Dosage: 4 MG, 1X/DAY
  14. LISINOPRIL. [Concomitant]
     Active Substance: LISINOPRIL
     Dosage: 20 MG, 1X/DAY
  15. POTASSIUM [Concomitant]
     Active Substance: POTASSIUM
     Dosage: 2 TABLETS, 2X/DAY
  16. REGRANEX [Suspect]
     Active Substance: BECAPLERMIN
     Indication: DIABETIC FOOT
     Dosage: UNK, 1X/DAY
     Route: 061
     Dates: start: 20151230, end: 201601
  17. REGRANEX [Suspect]
     Active Substance: BECAPLERMIN
     Dosage: UNK, 1X/WEEK
     Route: 061
     Dates: start: 201601
  18. ASPIRIN. [Concomitant]
     Active Substance: ASPIRIN
  19. TRICOR [Concomitant]
     Active Substance: FENOFIBRATE
     Dosage: 145 MG, 1X/DAY
  20. NOVOLIN [Concomitant]
     Active Substance: INSULIN HUMAN
     Dosage: 100 U, 2X/DAY
  21. ROBAXIN [Concomitant]
     Active Substance: METHOCARBAMOL
     Dosage: UNK, AS NEEDED
  22. NITRO PATCH [Concomitant]
     Active Substance: NITROGLYCERIN
     Dosage: 0.2 MG, 1X/DAY

REACTIONS (6)
  - Inappropriate schedule of drug administration [Not Recovered/Not Resolved]
  - Ocular vascular disorder [Unknown]
  - Stent placement [Unknown]
  - Incorrect product storage [Unknown]
  - Migraine [Unknown]
  - Angioplasty [Unknown]

NARRATIVE: CASE EVENT DATE: 20151230
